FAERS Safety Report 20620157 (Version 2)
Quarter: 2022Q1

REPORT INFORMATION
  Report Type: Report from Study
  Country: US (occurrence: US)
  Receive Date: 20220322
  Receipt Date: 20220324
  Transmission Date: 20220424
  Serious: Yes (Other)
  Sender: FDA-Public Use
  Company Number: US-MYLANLABS-2022M1009587

PATIENT
  Age: 48 Year
  Sex: Female
  Weight: 65.77 kg

DRUGS (2)
  1. GLATIRAMER ACETATE [Suspect]
     Active Substance: GLATIRAMER ACETATE
     Indication: Primary progressive multiple sclerosis
     Dosage: 40 MILLIGRAM, 3XW
     Route: 058
  2. DEVICE [Suspect]
     Active Substance: DEVICE
     Indication: Primary progressive multiple sclerosis
     Dosage: UNK

REACTIONS (8)
  - Chest discomfort [Unknown]
  - Arthralgia [Unknown]
  - Injection site pain [Unknown]
  - Device difficult to use [Unknown]
  - Injection site erythema [Unknown]
  - Injection site pruritus [Unknown]
  - Injection site swelling [Unknown]
  - Injection site induration [Unknown]

NARRATIVE: CASE EVENT DATE: 20220124
